FAERS Safety Report 6735209-5 (Version None)
Quarter: 2010Q2

REPORT INFORMATION
  Report Type: 
  Country: None (occurrence: None)
  Receive Date: 20100521
  Receipt Date: 20100513
  Transmission Date: 20101027
  Serious: Yes (Life-Threatening, Hospitalization)
  Sender: FDA-Public Use
  Company Number: JP-NAPPMUNDI-MAG-2010-0001245

PATIENT
  Sex: Male
  Weight: 60 kg

DRUGS (26)
  1. OXYCODONE HCL [Suspect]
     Indication: DRUG USE FOR UNKNOWN INDICATION
     Dosage: 50 MG, BID
     Route: 048
     Dates: start: 20091116
  2. OXYCODONE HCL [Suspect]
     Dosage: 40 MG, BID
     Dates: start: 20091102, end: 20091115
  3. OXYCODONE HCL [Suspect]
     Dosage: 30 MG, BID
     Route: 048
     Dates: start: 20091002
  4. SUTENT                             /05510201/ [Suspect]
     Indication: RENAL CELL CARCINOMA
     Dosage: 12.5 MG, DAILY
     Route: 048
     Dates: start: 20091117, end: 20091121
  5. SUTENT                             /05510201/ [Suspect]
     Dosage: 37.5 MG, DAILY
     Route: 048
     Dates: start: 20091029
  6. SUTENT                             /05510201/ [Suspect]
     Dosage: UNK
     Route: 048
     Dates: start: 20090919
  7. SUTENT                             /05510201/ [Suspect]
     Dosage: 25 MG, DAILY
     Route: 048
     Dates: start: 20090807
  8. SUTENT                             /05510201/ [Suspect]
     Dosage: 12.5 MG, DAILY
     Route: 048
     Dates: start: 20090702, end: 20090724
  9. SUTENT                             /05510201/ [Suspect]
     Dosage: 25 MG, DAILY
     Route: 048
     Dates: end: 20090622
  10. SELBEX [Concomitant]
     Dosage: UNK
     Route: 048
  11. MICARDIS HCT [Concomitant]
     Dosage: UNK
     Route: 048
  12. LAC B [Concomitant]
     Dosage: UNK
     Route: 048
  13. DASEN [Concomitant]
     Dosage: UNK
     Route: 048
  14. MUCODYNE [Concomitant]
     Dosage: UNK
     Route: 048
  15. LENDORMIN [Concomitant]
     Dosage: UNK
     Route: 048
  16. NAIXAN                             /00256202/ [Concomitant]
     Dosage: UNK
     Route: 048
  17. CODEINE SULFATE [Concomitant]
     Indication: RENAL CELL CARCINOMA
     Dosage: 3 G, TID
     Route: 048
     Dates: end: 20090717
  18. PURSENNID                          /00142207/ [Concomitant]
     Dosage: UNK
  19. TAKEPRON [Concomitant]
     Dosage: UNK
  20. ZYLORIC                            /00003301/ [Concomitant]
     Dosage: UNK
     Route: 048
  21. CEFAMEZIN                          /00288502/ [Concomitant]
     Dosage: UNK
     Route: 042
     Dates: start: 20091026, end: 20091102
  22. CYTOTEC [Concomitant]
     Dosage: 400 MG, BID
     Dates: start: 20091113
  23. CYTOTEC [Concomitant]
     Dosage: UNK MG, BID
     Route: 048
     Dates: start: 20091102
  24. NORVASC [Concomitant]
     Dosage: UNK
     Route: 048
     Dates: start: 20091002
  25. SOLACET D [Concomitant]
     Indication: RENAL CELL CARCINOMA
     Dosage: 500 ML, DAILY
     Dates: start: 20091121, end: 20091125
  26. DIART [Concomitant]
     Indication: RENAL CELL CARCINOMA
     Dosage: 30 MG, DAILY
     Route: 048
     Dates: start: 20091127

REACTIONS (2)
  - ILEUS [None]
  - INTERSTITIAL LUNG DISEASE [None]
